FAERS Safety Report 6010687-8 (Version None)
Quarter: 2008Q4

REPORT INFORMATION
  Report Type: 
  Country: None (occurrence: None)
  Receive Date: 20081216
  Receipt Date: 20081211
  Transmission Date: 20090506
  Serious: Yes (Death, Disabling)
  Sender: FDA-Public Use
  Company Number: OSCN-NO-0812L-0648

PATIENT
  Age: 55 Year
  Sex: Female

DRUGS (1)
  1. OMNISCAN [Suspect]
     Indication: MENINGIOMA MALIGNANT
     Dosage: 0.1 MMOL/KG, SINGLE DOSE, I.V.
     Route: 042

REACTIONS (4)
  - BEDRIDDEN [None]
  - CONDITION AGGRAVATED [None]
  - LOWER RESPIRATORY TRACT INFECTION [None]
  - NEPHROGENIC SYSTEMIC FIBROSIS [None]
